FAERS Safety Report 4384122-X (Version None)
Quarter: 2004Q2

REPORT INFORMATION
  Report Type: 
  Country: None (occurrence: None)
  Receive Date: 20040621
  Receipt Date: 20040607
  Transmission Date: 20050107
  Serious: Yes (Death, Other)
  Sender: FDA-Public Use
  Company Number: 2004037071

PATIENT
  Sex: 0

DRUGS (2)
  1. GEODON [Suspect]
     Indication: ILL-DEFINED DISORDER
  2. ANTIPSYCHOTICS (ANTIPSYCHOTICS) [Suspect]
     Indication: ILL-DEFINED DISORDER

REACTIONS (4)
  - ARRHYTHMIA [None]
  - ELECTROCARDIOGRAM QT PROLONGED [None]
  - SUDDEN DEATH [None]
  - TREATMENT NONCOMPLIANCE [None]
